FAERS Safety Report 5096610-1 (Version None)
Quarter: 2006Q3

REPORT INFORMATION
  Report Type: 
  Country: None (occurrence: None)
  Receive Date: 20060831
  Receipt Date: 20060818
  Transmission Date: 20061208
  Serious: Yes (Other)
  Sender: FDA-Public Use
  Company Number: SPI200600105

PATIENT
  Age: 30 Year
  Sex: Female
  Weight: 72.6 kg

DRUGS (2)
  1. AMITIZA [Suspect]
     Indication: CONSTIPATION
     Dosage: 24 MCG, BID, ORAL
     Route: 048
     Dates: start: 20060801, end: 20060801
  2. IMITREX /01044801/ (SUMATRIPTAN) [Concomitant]

REACTIONS (8)
  - CHEST DISCOMFORT [None]
  - DIARRHOEA [None]
  - DRUG INEFFECTIVE [None]
  - FEELING ABNORMAL [None]
  - FLUSHING [None]
  - TACHYCARDIA [None]
  - UNDERDOSE [None]
  - VERTIGO [None]
